FAERS Safety Report 4565137-5 (Version None)
Quarter: 2005Q1

REPORT INFORMATION
  Report Type: 
  Country: None (occurrence: None)
  Receive Date: 20050131
  Receipt Date: 20050118
  Transmission Date: 20050727
  Serious: Yes (Other)
  Sender: FDA-Public Use
  Company Number: 200510460GDDC

PATIENT
  Age: 47 Year
  Sex: Male
  Weight: 80 kg

DRUGS (13)
  1. ENOXAPARIN SODIUM [Suspect]
     Indication: MYOCARDIAL INFARCTION
     Dosage: DOSE: ENOXAPARIN STUDY DRUG BOLUS A NOT GIVEN
  2. ACTIVASE [Suspect]
     Indication: MYOCARDIAL INFARCTION
     Route: 042
     Dates: start: 20040412, end: 20040412
  3. ASPIRIN [Suspect]
     Indication: MYOCARDIAL INFARCTION
     Route: 048
     Dates: start: 20040412, end: 20040416
  4. ADRENALINE [Concomitant]
     Indication: CARDIOGENIC SHOCK
     Route: 042
     Dates: start: 20040413, end: 20040416
  5. NORADRENALIN [Concomitant]
     Indication: CARDIOGENIC SHOCK
     Route: 042
     Dates: start: 20040413, end: 20040416
  6. DOPAMINE HYDROCHLORIDE [Concomitant]
     Indication: CARDIOGENIC SHOCK
     Route: 042
     Dates: start: 20040413, end: 20040416
  7. DOBUTAMIN [Concomitant]
     Indication: CARDIOGENIC SHOCK
     Route: 042
     Dates: start: 20040413, end: 20040416
  8. FUROSEMIDE [Concomitant]
     Indication: CARDIOGENIC SHOCK
     Route: 042
     Dates: start: 20040413, end: 20040416
  9. CLOPIDOGREL [Concomitant]
     Route: 048
     Dates: start: 20040413, end: 20040416
  10. ENALAPRIL MALEATE [Concomitant]
  11. BISOPROLOL FUMARATE [Concomitant]
  12. AMLODIPINE [Concomitant]
  13. SIMVASTATIN [Concomitant]

REACTIONS (3)
  - CARDIOGENIC SHOCK [None]
  - THERAPY NON-RESPONDER [None]
  - THROMBOCYTOPENIA [None]
